FAERS Safety Report 9907146 (Version 2)
Quarter: 2014Q2

REPORT INFORMATION
  Report Type: Spontaneous
  Country: US (occurrence: US)
  Receive Date: 20140218
  Receipt Date: 20140414
  Transmission Date: 20141212
  Serious: Yes (Hospitalization)
  Sender: FDA-Public Use
  Company Number: US-B.I. PHARMACEUTICALS,INC./RIDGEFIELD-2014-BI-06780BP

PATIENT
  Age: 46 Year
  Sex: Female

DRUGS (13)
  1. PRADAXA [Suspect]
     Indication: ATRIAL FIBRILLATION
     Route: 065
     Dates: start: 20110930
  2. ASPIRIN [Concomitant]
     Dosage: 81 MG
     Route: 048
  3. HYDRALAZINE [Concomitant]
     Dosage: 300 MG
     Route: 048
  4. ENALAPRIL MALEATE [Concomitant]
     Dosage: 20 MG
     Route: 048
  5. SERTRALINE [Concomitant]
     Dosage: 100 MG
     Route: 048
  6. DOXYCYCLINE HYCLATE [Concomitant]
     Dosage: 100 MG
     Route: 048
  7. DIGOXIN [Concomitant]
     Dosage: 0.25 MG
     Route: 048
  8. KLOR-CON [Concomitant]
     Dosage: 20 MEQ
     Route: 048
  9. FUROSEMIDE [Concomitant]
     Dosage: 40 MG
     Route: 048
  10. BIDIL [Concomitant]
     Route: 048
  11. ERGOCALCIFEROL [Concomitant]
     Route: 048
  12. CARVEDILOL [Concomitant]
     Dosage: 50 MG
     Route: 048
  13. LISINOPRIL [Concomitant]
     Dosage: 40 MG
     Route: 048

REACTIONS (5)
  - Haemorrhagic stroke [Unknown]
  - Cerebral haemorrhage [Unknown]
  - Ear haemorrhage [Unknown]
  - Diarrhoea [Unknown]
  - Abdominal pain [Unknown]
